FAERS Safety Report 9167646 (Version 2)
Quarter: 2013Q2

REPORT INFORMATION
  Report Type: Spontaneous
  Country: AU (occurrence: AU)
  Receive Date: 20130318
  Receipt Date: 20130503
  Transmission Date: 20140414
  Serious: Yes (Other)
  Sender: FDA-Public Use
  Company Number: PHHY2013AU024766

PATIENT
  Sex: Female

DRUGS (1)
  1. EXELON PATCH [Suspect]
     Dosage: 9.5 MG, (PER 24 HOURS)
     Route: 062

REACTIONS (3)
  - Blood urine present [Unknown]
  - Dysarthria [Unknown]
  - Coordination abnormal [Unknown]
